FAERS Safety Report 5452954-2 (Version None)
Quarter: 2007Q3

REPORT INFORMATION
  Report Type: 
  Country: None (occurrence: None)
  Receive Date: 20070914
  Receipt Date: 20070907
  Transmission Date: 20080115
  Serious: Yes (Death, Hospitalization, Other)
  Sender: FDA-Public Use
  Company Number: US-GENENTECH-243064

PATIENT
  Sex: Male
  Weight: 56.689 kg

DRUGS (5)
  1. AVASTIN [Suspect]
     Indication: COLON CANCER METASTATIC
     Dosage: 5 MG/KG, Q2W
     Route: 042
     Dates: start: 20061030
  2. CPT-11 [Concomitant]
     Indication: DRUG USE FOR UNKNOWN INDICATION
     Dosage: 280 MG, UNK
     Dates: start: 20061030
  3. LEUCOVORIN [Concomitant]
     Indication: DRUG USE FOR UNKNOWN INDICATION
     Dosage: 630 MG, UNK
     Dates: start: 20061030
  4. FLUOROURACIL [Concomitant]
     Indication: DRUG USE FOR UNKNOWN INDICATION
     Dosage: 630 MG, UNK
     Dates: start: 20061030
  5. OXALIPLATIN [Concomitant]
     Indication: COLORECTAL CANCER METASTATIC
     Dates: start: 20061101

REACTIONS (1)
  - FISTULA [None]
